FAERS Safety Report 20103117 (Version 2)
Quarter: 2022Q1

REPORT INFORMATION
  Report Type: Spontaneous
  Country: US (occurrence: None)
  Receive Date: 20211123
  Receipt Date: 20220103
  Transmission Date: 20220424
  Serious: No
  Sender: FDA-Public Use
  Company Number: 2021A792543

PATIENT
  Sex: Female
  Weight: 77.1 kg

DRUGS (5)
  1. BUDESONIDE\FORMOTEROL\GLYCOPYRRONIUM [Suspect]
     Active Substance: BUDESONIDE\FORMOTEROL\GLYCOPYRRONIUM
     Indication: Chronic obstructive pulmonary disease
     Dosage: 160MCG/9MCG/4.8MCG 120 INHALATION CANISTER
     Route: 055
  2. PROAIR HFA [Concomitant]
     Active Substance: ALBUTEROL SULFATE
  3. ALPRAZOLAM [Concomitant]
     Active Substance: ALPRAZOLAM
  4. SINGULAIR [Concomitant]
     Active Substance: MONTELUKAST SODIUM
  5. OXYGEN [Concomitant]
     Active Substance: OXYGEN

REACTIONS (3)
  - Wheezing [Unknown]
  - Device malfunction [Unknown]
  - Device use issue [Unknown]
